FAERS Safety Report 11087452 (Version 1)
Quarter: 2015Q2

REPORT INFORMATION
  Report Type: Spontaneous
  Country: FR (occurrence: FR)
  Receive Date: 20150504
  Receipt Date: 20150504
  Transmission Date: 20150821
  Serious: Yes (Death, Hospitalization)
  Sender: FDA-Public Use
  Company Number: FR-PFIZER INC-2015146152

PATIENT
  Age: 88 Year
  Sex: Male

DRUGS (9)
  1. CANCIDAS [Suspect]
     Active Substance: CASPOFUNGIN ACETATE
     Indication: STAPHYLOCOCCAL INFECTION
     Dosage: 70 MG, DAILY
     Route: 065
     Dates: start: 20140807, end: 20140820
  2. CUBICIN [Suspect]
     Active Substance: DAPTOMYCIN
     Indication: STAPHYLOCOCCAL INFECTION
     Dosage: 500 MG, DAILY
     Route: 042
     Dates: start: 20140807, end: 20140824
  3. CORDARONE [Suspect]
     Active Substance: AMIODARONE HYDROCHLORIDE
     Dosage: 200 MG, DAILY
     Route: 048
     Dates: end: 20140825
  4. GENTAMICIN. [Concomitant]
     Active Substance: GENTAMICIN
     Dosage: UNK
  5. FLUCONAZOLE. [Concomitant]
     Active Substance: FLUCONAZOLE
     Dosage: UNK
  6. FUSIDIC [Suspect]
     Active Substance: FUSIDIC ACID
     Indication: STAPHYLOCOCCAL INFECTION
     Dosage: A DOSE OF 2-6 TABLETS,DAILY
     Route: 048
     Dates: start: 20140807, end: 20140819
  7. VANCOMYCIN [Concomitant]
     Active Substance: VANCOMYCIN
     Dosage: UNK
  8. LASILIX [Suspect]
     Active Substance: FUROSEMIDE
     Dosage: A DOSE OF 40-160 MG DAILY
     Route: 065
     Dates: end: 20140821
  9. XATRAL [Suspect]
     Active Substance: ALFUZOSIN
     Dosage: 10 MG, DAILY
     Route: 048
     Dates: start: 20140729, end: 20140820

REACTIONS (16)
  - Death [Fatal]
  - Acute kidney injury [Unknown]
  - Mitral valve incompetence [None]
  - Condition aggravated [None]
  - Hepatic failure [Unknown]
  - Aortic stenosis [None]
  - Hepatotoxicity [None]
  - Hepatocellular injury [Unknown]
  - Respiratory disorder [None]
  - Prothrombin time prolonged [None]
  - Aortic valve incompetence [None]
  - Staphylococcal sepsis [None]
  - Inflammation [None]
  - Nervous system disorder [None]
  - Candida test positive [None]
  - Coagulation factor V level decreased [None]

NARRATIVE: CASE EVENT DATE: 20140802
